FAERS Safety Report 11859999 (Version 4)
Quarter: 2016Q1

REPORT INFORMATION
  Report Type: Report from Study
  Country: US (occurrence: US)
  Receive Date: 20151222
  Receipt Date: 20160125
  Transmission Date: 20160526
  Serious: Yes (Hospitalization)
  Sender: FDA-Public Use
  Company Number: US-BIOGEN-2012BI023430

PATIENT
  Age: 63 Year
  Sex: Male

DRUGS (6)
  1. AVONEX [Suspect]
     Active Substance: INTERFERON BETA-1A
     Indication: MULTIPLE SCLEROSIS
     Route: 030
     Dates: start: 19990427, end: 200308
  2. AVONEX [Suspect]
     Active Substance: INTERFERON BETA-1A
     Route: 030
     Dates: start: 20120702
  3. AVONEX [Suspect]
     Active Substance: INTERFERON BETA-1A
     Route: 030
     Dates: start: 200308, end: 20120625
  4. PROVIGIL [Concomitant]
     Active Substance: MODAFINIL
     Indication: PRODUCT USED FOR UNKNOWN INDICATION
     Route: 065
  5. TYLENOL [Concomitant]
     Active Substance: ACETAMINOPHEN
     Indication: PREMEDICATION
     Route: 065
     Dates: start: 1999
  6. AVONEX [Suspect]
     Active Substance: INTERFERON BETA-1A
     Route: 030
     Dates: start: 20120914

REACTIONS (83)
  - Paranoia [Not Recovered/Not Resolved]
  - Tension [Not Recovered/Not Resolved]
  - Sleep apnoea syndrome [Not Recovered/Not Resolved]
  - Prothrombin time abnormal [Unknown]
  - Gait disturbance [Not Recovered/Not Resolved]
  - Stress [Recovered/Resolved]
  - Viral infection [Recovered/Resolved]
  - Suicidal ideation [Not Recovered/Not Resolved]
  - Tremor [Not Recovered/Not Resolved]
  - Back injury [Recovered/Resolved]
  - Concussion [Unknown]
  - Fine motor skill dysfunction [Unknown]
  - Localised infection [Unknown]
  - Joint lock [Recovered/Resolved]
  - Mitral valve incompetence [Not Recovered/Not Resolved]
  - Loss of consciousness [Recovered/Resolved]
  - Colonoscopy [Unknown]
  - Poor quality sleep [Not Recovered/Not Resolved]
  - Sexual dysfunction [Not Recovered/Not Resolved]
  - Amnesia [Not Recovered/Not Resolved]
  - Sinus congestion [Unknown]
  - Drug administered at inappropriate site [Recovered/Resolved]
  - Dizziness [Recovered/Resolved]
  - Depression [Not Recovered/Not Resolved]
  - Prostatic disorder [Not Recovered/Not Resolved]
  - Haemorrhagic diathesis [Unknown]
  - Sinusitis [Not Recovered/Not Resolved]
  - Oropharyngeal pain [Not Recovered/Not Resolved]
  - Temperature intolerance [Not Recovered/Not Resolved]
  - Osteoporosis [Not Recovered/Not Resolved]
  - Injection site bruising [Unknown]
  - Neck pain [Not Recovered/Not Resolved]
  - Influenza like illness [Recovered/Resolved]
  - Sneezing [Unknown]
  - Balance disorder [Unknown]
  - Body height decreased [Not Recovered/Not Resolved]
  - Weight fluctuation [Unknown]
  - Blindness [Unknown]
  - Pain in extremity [Recovered/Resolved]
  - Back pain [Recovered/Resolved]
  - Arthralgia [Not Recovered/Not Resolved]
  - Cardiac valve rupture [Recovered/Resolved]
  - Polyp [Unknown]
  - Cognitive disorder [Not Recovered/Not Resolved]
  - Hypotonia [Not Recovered/Not Resolved]
  - Mental disorder [Not Recovered/Not Resolved]
  - Coagulopathy [Not Recovered/Not Resolved]
  - Injury [Unknown]
  - Musculoskeletal stiffness [Not Recovered/Not Resolved]
  - Pyrexia [Recovered/Resolved]
  - Insomnia [Not Recovered/Not Resolved]
  - Blood cholesterol increased [Unknown]
  - Hepatic enzyme increased [Not Recovered/Not Resolved]
  - Glucose tolerance impaired [Unknown]
  - Asthenia [Recovered/Resolved]
  - Influenza [Recovered/Resolved]
  - Fall [Recovered/Resolved]
  - Blood pressure increased [Unknown]
  - Dysstasia [Not Recovered/Not Resolved]
  - Malaise [Recovered/Resolved]
  - Back disorder [Unknown]
  - Overweight [Not Recovered/Not Resolved]
  - Anaemia [Unknown]
  - Injection site pain [Recovered/Resolved]
  - Cerebral disorder [Not Recovered/Not Resolved]
  - Anger [Unknown]
  - Memory impairment [Not Recovered/Not Resolved]
  - Coordination abnormal [Not Recovered/Not Resolved]
  - Injection site haemorrhage [Recovered/Resolved]
  - Fatigue [Not Recovered/Not Resolved]
  - Pain [Not Recovered/Not Resolved]
  - Polyarthritis [Not Recovered/Not Resolved]
  - Road traffic accident [Recovered/Resolved]
  - Hypoaesthesia [Recovered/Resolved]
  - Joint injury [Unknown]
  - Contusion [Not Recovered/Not Resolved]
  - Skull fracture [Recovered/Resolved with Sequelae]
  - Myocardial infarction [Recovered/Resolved]
  - Abnormal sleep-related event [Recovered/Resolved]
  - Arthropathy [Not Recovered/Not Resolved]
  - Feeling abnormal [Unknown]
  - Mobility decreased [Not Recovered/Not Resolved]
  - Peripheral swelling [Recovered/Resolved]

NARRATIVE: CASE EVENT DATE: 1999
